FAERS Safety Report 16462456 (Version 1)
Quarter: 2019Q2

REPORT INFORMATION
  Report Type: Spontaneous
  Country: IT (occurrence: IT)
  Receive Date: 20190621
  Receipt Date: 20190621
  Transmission Date: 20190711
  Serious: Yes (Other)
  Sender: FDA-Public Use
  Company Number: IT-ACCORD-133874

PATIENT
  Age: 58 Year
  Sex: Female
  Weight: 79 kg

DRUGS (4)
  1. PACLITAXEL ACCORD [Suspect]
     Active Substance: PACLITAXEL
     Indication: OVARIAN CANCER
     Dosage: STRENGTH: 6 MG/ML?DATE OF LAST ADMINISTRATION: 19-FEB-2019
     Route: 042
     Dates: start: 20190129
  2. CARDIOASPIRIN [Concomitant]
     Active Substance: ASPIRIN
     Indication: HYPERTENSION
     Route: 048
  3. BISOPROLOL [Concomitant]
     Active Substance: BISOPROLOL
     Indication: HYPERTENSION
     Route: 048
  4. CARBOPLATIN. [Suspect]
     Active Substance: CARBOPLATIN
     Indication: OVARIAN CANCER
     Dosage: STRENGTH: 10 MG / ML ?DATE OF LAST ADMINISTRATION: 19-FEB-2019
     Route: 042
     Dates: start: 20190129

REACTIONS (2)
  - Hypertransaminasaemia [Recovering/Resolving]
  - Neutropenia [Recovering/Resolving]

NARRATIVE: CASE EVENT DATE: 20190311
